FAERS Safety Report 24973591 (Version 1)
Quarter: 2025Q1

REPORT INFORMATION
  Report Type: Spontaneous
  Country: US (occurrence: US)
  Receive Date: 20250217
  Receipt Date: 20250217
  Transmission Date: 20250409
  Serious: No
  Sender: CIPLA
  Company Number: US-CIPLA LTD.-2024US13342

PATIENT

DRUGS (1)
  1. GABAPENTIN [Suspect]
     Active Substance: GABAPENTIN
     Indication: Paraesthesia
     Dosage: 100 MILLIGRAM, TID (ONE IN MORNING, ONE AT AFTERNOON AND ONE AT NIGHT)
     Route: 048

REACTIONS (1)
  - Product prescribing issue [Unknown]
